FAERS Safety Report 5423969-5 (Version None)
Quarter: 2007Q3

REPORT INFORMATION
  Report Type: 
  Country: None (occurrence: None)
  Receive Date: 20070727
  Receipt Date: 20060713
  Transmission Date: 20080115
  Serious: Yes (Hospitalization)
  Sender: FDA-Public Use
  Company Number: THYM-11004

PATIENT
  Age: 32 Year
  Sex: Male
  Weight: 90 kg

DRUGS (7)
  1. THYMOGLOBULIN [Suspect]
     Indication: RENAL TRANSPLANT
     Dosage: 1.5 MG/KG QD IV
     Route: 042
     Dates: start: 20060516, end: 20060518
  2. METHYLPREDNISOLONE 16MG TAB [Concomitant]
  3. PREDNISONE [Concomitant]
  4. TACROLIMUS [Concomitant]
  5. MYCOPHENOLATE MOFETIL [Concomitant]
  6. METHYLPREDNISOLONE 16MG TAB [Concomitant]
  7. PREDNISONE [Concomitant]

REACTIONS (1)
  - URETERAL NECROSIS [None]
